FAERS Safety Report 19043138 (Version 1)
Quarter: 2021Q1

REPORT INFORMATION
  Report Type: Spontaneous
  Country: US (occurrence: US)
  Receive Date: 20210323
  Receipt Date: 20210323
  Transmission Date: 20210420
  Serious: No
  Sender: FDA-Public Use
  Company Number: US-SA-2021SA097670

PATIENT
  Sex: Male
  Weight: 90.7 kg

DRUGS (2)
  1. METOCLOPRAMIDE HYDROCHLORIDE. [Suspect]
     Active Substance: METOCLOPRAMIDE HYDROCHLORIDE
  2. DUPIXENT [Suspect]
     Active Substance: DUPILUMAB
     Dosage: 200 MG, QOW
     Route: 058
     Dates: start: 20190223

REACTIONS (4)
  - Viral infection [Unknown]
  - Pain [Unknown]
  - Swelling [Unknown]
  - Scleral discolouration [Unknown]
